FAERS Safety Report 22015083 (Version 2)
Quarter: 2025Q3

REPORT INFORMATION
  Report Type: Spontaneous
  Country: EU (occurrence: EU)
  Receive Date: 20230221
  Receipt Date: 20250711
  Transmission Date: 20251021
  Serious: Yes (Hospitalization)
  Sender: AUROBINDO
  Company Number: EU-GLAXOSMITHKLINE-IT2023EME019536

PATIENT
  Age: 4 Year
  Sex: Male

DRUGS (1)
  1. AMOXICILLIN\CLAVULANIC ACID [Suspect]
     Active Substance: AMOXICILLIN\CLAVULANIC ACID
     Indication: Antibiotic therapy
     Route: 048

REACTIONS (3)
  - Purulent discharge [Recovered/Resolved]
  - Scrotal erythema [Recovered/Resolved]
  - Scrotal pain [Recovered/Resolved]
